FAERS Safety Report 5584865-6 (Version None)
Quarter: 2008Q1

REPORT INFORMATION
  Report Type: 
  Country: None (occurrence: None)
  Receive Date: 20080104
  Receipt Date: 20071228
  Transmission Date: 20080703
  Serious: Yes (Death, Hospitalization)
  Sender: FDA-Public Use
  Company Number: 163-21880-07121533

PATIENT
  Age: 82 Year
  Sex: Female
  Weight: 53.9 kg

DRUGS (1)
  1. REVLIMID [Suspect]
     Indication: ACUTE MYELOID LEUKAEMIA
     Dosage: 50 MG, QD FOR MAX OF 28 DAYS, ORAL
     Route: 048
     Dates: start: 20071017, end: 20071114

REACTIONS (6)
  - CYSTITIS VIRAL [None]
  - DYSPNOEA [None]
  - GENERAL PHYSICAL HEALTH DETERIORATION [None]
  - HAEMATURIA [None]
  - HYPOTENSION [None]
  - THROMBOCYTOPENIA [None]
